FAERS Safety Report 9109360 (Version 1)
Quarter: 2013Q1

REPORT INFORMATION
  Report Type: Spontaneous
  Country: AU (occurrence: AU)
  Receive Date: 20130222
  Receipt Date: 20130222
  Transmission Date: 20140127
  Serious: Yes (Hospitalization)
  Sender: FDA-Public Use
  Company Number: AU-AMGEN-AUSSP2013011323

PATIENT
  Age: 82 Year
  Sex: Male

DRUGS (2)
  1. XGEVA [Suspect]
     Indication: METASTASES TO BONE
     Dosage: 120 MG, 4 TIMES/WK
     Route: 058
     Dates: start: 2012, end: 2012
  2. LUCRIN [Concomitant]
     Indication: PROSTATE CANCER

REACTIONS (1)
  - Cellulitis [Recovered/Resolved]
